FAERS Safety Report 15755802 (Version 11)
Quarter: 2021Q1

REPORT INFORMATION
  Report Type: Spontaneous
  Country: NL (occurrence: NL)
  Receive Date: 20181224
  Receipt Date: 20210112
  Transmission Date: 20210419
  Serious: Yes (Death, Life-Threatening, Other)
  Sender: FDA-Public Use
  Company Number: NL-TEVA-2018-NL-990272

PATIENT
  Age: 47 Year
  Sex: Female
  Weight: 80 kg

DRUGS (6)
  1. BISACODYL. [Concomitant]
     Active Substance: BISACODYL
     Dosage: 10 MG
     Dates: start: 20180718
  2. DIAZEPAM. [Suspect]
     Active Substance: DIAZEPAM
     Dosage: 5 MG
     Route: 065
     Dates: start: 20100907
  3. OMEPRAZOLE. [Concomitant]
     Active Substance: OMEPRAZOLE
     Dosage: 20 MG
     Dates: start: 20130312
  4. DESLORATADINE. [Interacting]
     Active Substance: DESLORATADINE
     Dosage: 5 MG
     Dates: start: 20150421
  5. TRACYDAL (TRANYLCYPROMINE) TABLET, 20 MG (MILLIGRAM) [Interacting]
     Active Substance: TRANYLCYPROMINE SULFATE
     Indication: DEPRESSION
     Dosage: 3 DOSAGE FORMS DAILY;
     Dates: start: 20180813, end: 20180813
  6. NARDIL [Interacting]
     Active Substance: PHENELZINE SULFATE
     Indication: DEPRESSION
     Dosage: 45 MG
     Dates: start: 20150512, end: 20180812

REACTIONS (6)
  - Drug dose titration not performed [Unknown]
  - Potentiating drug interaction [Unknown]
  - Contraindicated product administered [Not Recovered/Not Resolved]
  - Haemorrhage intracranial [Fatal]
  - Hypertensive crisis [Unknown]
  - Product prescribing error [Unknown]

NARRATIVE: CASE EVENT DATE: 20180813
